FAERS Safety Report 17181354 (Version 1)
Quarter: 2019Q4

REPORT INFORMATION
  Report Type: Spontaneous
  Country: US (occurrence: US)
  Receive Date: 20191219
  Receipt Date: 20191219
  Transmission Date: 20200122
  Serious: Yes (Hospitalization)
  Sender: FDA-Public Use
  Company Number: US-ELI_LILLY_AND_COMPANY-US201912006699

PATIENT
  Age: 59 Year
  Sex: Male

DRUGS (2)
  1. HUMALOG [Suspect]
     Active Substance: INSULIN LISPRO
     Indication: TYPE 2 DIABETES MELLITUS
     Dosage: UNK, UNKNOWN
     Route: 058
     Dates: start: 2003, end: 2016
  2. BASAGLAR [Suspect]
     Active Substance: INSULIN GLARGINE
     Indication: TYPE 2 DIABETES MELLITUS
     Dosage: 200 DOSAGE FORM, DAILY
     Dates: start: 2019

REACTIONS (6)
  - Cerebrovascular accident [Recovered/Resolved]
  - Carotid artery occlusion [Recovered/Resolved]
  - Upper limb fracture [Recovering/Resolving]
  - Blood glucose decreased [Recovered/Resolved]
  - Postoperative thrombosis [Recovered/Resolved]
  - Blood glucose decreased [Recovered/Resolved]

NARRATIVE: CASE EVENT DATE: 2019
